FAERS Safety Report 5176402-5 (Version None)
Quarter: 2006Q4

REPORT INFORMATION
  Report Type: 
  Country: None (occurrence: None)
  Receive Date: 20061206
  Receipt Date: 20061120
  Transmission Date: 20070319
  Serious: Yes (Death, Life-Threatening)
  Sender: FDA-Public Use
  Company Number: 231356

PATIENT
  Age: 74 Year
  Sex: Male

DRUGS (9)
  1. AVASTIN [Suspect]
     Indication: COLORECTAL CANCER
     Dosage: 600 MG, QD, INTRAVENOUS
     Route: 042
     Dates: start: 20060731, end: 20060911
  2. OXALIPLATIN [Concomitant]
  3. KEVATRIL (GRANISETRON HYDROCHLORIDE) [Concomitant]
  4. DEXAMETHASONE [Concomitant]
  5. CALCIUM GLUCONATE [Concomitant]
  6. MAGNESIUM NOS [Concomitant]
  7. TAVEGIL (CLEMASTINE FUMARATE) [Concomitant]
  8. RANITIDINE [Concomitant]
  9. CYANOCOBALAMIN [Concomitant]

REACTIONS (7)
  - GASTRIC PERFORATION [None]
  - GASTRIC ULCER [None]
  - GENERAL PHYSICAL HEALTH DETERIORATION [None]
  - METASTASES TO ABDOMINAL WALL [None]
  - METASTASES TO PERITONEUM [None]
  - PERITONITIS [None]
  - POST PROCEDURAL SEPSIS [None]
